FAERS Safety Report 7816645-2 (Version None)
Quarter: 2011Q4

REPORT INFORMATION
  Report Type: 
  Country: None (occurrence: None)
  Receive Date: 20111017
  Receipt Date: 20111006
  Transmission Date: 20120403
  Serious: Yes (Other)
  Sender: FDA-Public Use
  Company Number: US-US-EMD SERONO, INC.-231969J10USA

PATIENT
  Sex: Female
  Weight: 66 kg

DRUGS (3)
  1. MULTI-VITAMIN [Concomitant]
  2. FISH OIL [Concomitant]
  3. REBIF [Suspect]
     Indication: MULTIPLE SCLEROSIS
     Route: 058
     Dates: start: 20030101

REACTIONS (2)
  - DEAFNESS [None]
  - OPTIC NEURITIS [None]
